FAERS Safety Report 4788703-0 (Version None)
Quarter: 2005Q3

REPORT INFORMATION
  Report Type: 
  Country: None (occurrence: None)
  Receive Date: 20050915
  Receipt Date: 20050525
  Transmission Date: 20060218
  Serious: No
  Sender: FDA-Public Use
  Company Number: BDI-007240

PATIENT
  Sex: Male

DRUGS (1)
  1. MULTIHANCE [Suspect]
     Indication: NUCLEAR MAGNETIC RESONANCE IMAGING BRAIN
     Dosage: IV
     Route: 042
     Dates: start: 20050525, end: 20050525

REACTIONS (10)
  - ASTHENIA [None]
  - COUGH [None]
  - DIZZINESS [None]
  - DYSPHONIA [None]
  - HEADACHE [None]
  - NAUSEA [None]
  - PAIN [None]
  - PHOTOPHOBIA [None]
  - THROAT IRRITATION [None]
  - TREMOR [None]
